FAERS Safety Report 23596822 (Version 3)
Quarter: 2024Q2

REPORT INFORMATION
  Report Type: Spontaneous
  Country: US (occurrence: US)
  Receive Date: 20240305
  Receipt Date: 20240508
  Transmission Date: 20240716
  Serious: Yes (Hospitalization, Other)
  Sender: FDA-Public Use
  Company Number: US-PFIZER INC-202400056542

PATIENT
  Age: 34 Year
  Sex: Male
  Weight: 86.168 kg

DRUGS (1)
  1. CHANTIX [Suspect]
     Active Substance: VARENICLINE TARTRATE
     Dosage: UNK (OFF AND ON)
     Dates: start: 2008, end: 20150326

REACTIONS (7)
  - Suicidal ideation [Recovered/Resolved]
  - Hallucination, auditory [Recovered/Resolved]
  - Screaming [Recovered/Resolved]
  - Aggression [Recovered/Resolved]
  - Nightmare [Recovered/Resolved]
  - Tympanic membrane perforation [Unknown]
  - Alcohol intolerance [Unknown]

NARRATIVE: CASE EVENT DATE: 20080101
